FAERS Safety Report 16336345 (Version 1)
Quarter: 2019Q2

REPORT INFORMATION
  Report Type: Spontaneous
  Country: US (occurrence: US)
  Receive Date: 20190521
  Receipt Date: 20190521
  Transmission Date: 20190711
  Serious: Yes (Other)
  Sender: FDA-Public Use
  Company Number: US-AUROBINDO-AUR-APL-2019-028776

PATIENT

DRUGS (2)
  1. TOPAMAX [Concomitant]
     Active Substance: TOPIRAMATE
     Indication: OBESITY
     Dosage: UNK, FORM LAST 4 YEARS
     Route: 065
  2. PHENTERMINE. [Suspect]
     Active Substance: PHENTERMINE
     Indication: OBESITY
     Dosage: UNK
     Route: 065

REACTIONS (3)
  - Cardiac failure acute [Unknown]
  - Mitral valve incompetence [Unknown]
  - Ejection fraction decreased [Recovering/Resolving]
